FAERS Safety Report 11004092 (Version 1)
Quarter: 2015Q2

REPORT INFORMATION
  Report Type: Spontaneous
  Country: FR (occurrence: FR)
  Receive Date: 20150409
  Receipt Date: 20150409
  Transmission Date: 20150821
  Serious: Yes (Hospitalization, Other)
  Sender: FDA-Public Use
  Company Number: FR-ELI_LILLY_AND_COMPANY-FR201503009774

PATIENT
  Age: 80 Year
  Sex: Female

DRUGS (5)
  1. NEBIVOLOL [Concomitant]
     Active Substance: NEBIVOLOL
     Dosage: UNK, UNKNOWN
     Route: 065
  2. CRESTOR [Concomitant]
     Active Substance: ROSUVASTATIN CALCIUM
     Dosage: UNK, UNKNOWN
     Route: 065
  3. DOLIPRANE [Concomitant]
     Active Substance: ACETAMINOPHEN
     Dosage: UNK, UNKNOWN
     Route: 065
  4. VALSATAM [Concomitant]
     Dosage: UNK, UNKNOWN
     Route: 065
  5. CYMBALTA [Suspect]
     Active Substance: DULOXETINE HYDROCHLORIDE
     Indication: DEPRESSION
     Dosage: 60 MG, QD
     Route: 065
     Dates: end: 20141220

REACTIONS (9)
  - Inappropriate antidiuretic hormone secretion [Recovered/Resolved]
  - General physical health deterioration [Unknown]
  - Vomiting [Unknown]
  - Blood osmolarity decreased [Recovered/Resolved]
  - Urine osmolarity decreased [Recovered/Resolved]
  - Nausea [Recovered/Resolved]
  - Diarrhoea [Unknown]
  - Hyponatraemia [Recovered/Resolved]
  - Lung disorder [Unknown]

NARRATIVE: CASE EVENT DATE: 20141213
